FAERS Safety Report 8514149-5 (Version None)
Quarter: 2012Q3

REPORT INFORMATION
  Report Type: 
  Country: None (occurrence: None)
  Receive Date: 20120717
  Receipt Date: 20120509
  Transmission Date: 20120928
  Serious: No
  Sender: FDA-Public Use
  Company Number: US-FOUGERA-2012FO001098

PATIENT
  Age: 15 Year
  Sex: Female
  Weight: 42.64 kg

DRUGS (1)
  1. CLINDAMYCIN [Suspect]
     Indication: ACNE
     Route: 061
     Dates: start: 20110101

REACTIONS (3)
  - ALOPECIA [None]
  - HAIR GROWTH ABNORMAL [None]
  - ACCIDENTAL EXPOSURE [None]
